FAERS Safety Report 24367710 (Version 1)
Quarter: 2024Q3

REPORT INFORMATION
  Report Type: Spontaneous
  Country: US (occurrence: None)
  Receive Date: 20240926
  Receipt Date: 20240926
  Transmission Date: 20241017
  Serious: No
  Sender: Public
  Company Number: None

PATIENT
  Age: 75 Year
  Sex: Male
  Weight: 85.5 kg

DRUGS (1)
  1. TETRABENAZINE [Suspect]
     Active Substance: TETRABENAZINE
     Indication: Tardive dyskinesia
     Dates: start: 20240702

REACTIONS (3)
  - Insomnia [None]
  - Dysuria [None]
  - Balance disorder [None]

NARRATIVE: CASE EVENT DATE: 20240915
